FAERS Safety Report 8567770 (Version 3)
Quarter: 2012Q4

REPORT INFORMATION
  Report Type: 
  Country: GB (occurrence: GB)
  Receive Date: 20120518
  Receipt Date: 20120920
  Transmission Date: 20130627
  Serious: Yes (Hospitalization)
  Sender: FDA-Public Use
  Company Number: GB-ABBOTT-12P-167-0934904-00

PATIENT
  Age: 39 Year
  Sex: Female

DRUGS (6)
  1. PROSTAP SR [Suspect]
     Indication: ENDOMETRIOSIS
     Route: 065
     Dates: start: 201201
  2. PROSTAP SR [Suspect]
     Indication: PELVIC PAIN
  3. CARBAMAZEPINE [Concomitant]
     Indication: PRODUCT USED FOR UNKNOWN INDICATION
     Dates: start: 20080101
  4. ACETAZOLAMIDE [Concomitant]
     Indication: PRODUCT USED FOR UNKNOWN INDICATION
     Dates: start: 20080101
  5. CLOBAZAM [Concomitant]
     Indication: EPILEPSY
     Dates: start: 20080101
  6. VENLAFAXINE [Concomitant]
     Indication: DEPRESSION
     Route: 048
     Dates: start: 20080101

REACTIONS (2)
  - Cholangitis [Recovered/Resolved]
  - Focal nodular hyperplasia [Unknown]
